FAERS Safety Report 5708638-6 (Version None)
Quarter: 2008Q2

REPORT INFORMATION
  Report Type: 
  Country: None (occurrence: None)
  Receive Date: 20080414
  Receipt Date: 20080414
  Transmission Date: 20081010
  Serious: No
  Sender: FDA-Public Use
  Company Number: None

PATIENT
  Age: 40 Year
  Sex: Female
  Weight: 87.0906 kg

DRUGS (2)
  1. BOTOX [Suspect]
     Indication: HEADACHE
     Dosage: 22CC SYRINGE 3 MONTHS INTRACEREBR
     Route: 018
     Dates: start: 20050305, end: 20070618
  2. BOTOX [Suspect]
     Indication: NECK PAIN
     Dosage: 22CC SYRINGE 3 MONTHS INTRACEREBR
     Route: 018
     Dates: start: 20050305, end: 20070618

REACTIONS (5)
  - EYE PAIN [None]
  - EYELID PTOSIS [None]
  - LABORATORY TEST ABNORMAL [None]
  - LACRIMATION INCREASED [None]
  - SPEECH DISORDER [None]
